FAERS Safety Report 25670586 (Version 1)
Quarter: 2025Q3

REPORT INFORMATION
  Report Type: Spontaneous
  Country: US (occurrence: US)
  Receive Date: 20250812
  Receipt Date: 20250812
  Transmission Date: 20251020
  Serious: Yes (Other)
  Sender: SANOFI AVENTIS
  Company Number: US-SA-2025SA233778

PATIENT
  Sex: Female

DRUGS (1)
  1. DUPIXENT [Suspect]
     Active Substance: DUPILUMAB
     Indication: Dermatitis atopic
     Route: 058

REACTIONS (7)
  - Pneumonia [Unknown]
  - Tongue pruritus [Unknown]
  - COVID-19 [Unknown]
  - Illness [Unknown]
  - Respiratory fume inhalation disorder [Unknown]
  - Eye pruritus [Unknown]
  - Drug ineffective [Unknown]
